FAERS Safety Report 8256124-4 (Version None)
Quarter: 2012Q2

REPORT INFORMATION
  Report Type: 
  Country: None (occurrence: None)
  Receive Date: 20120403
  Receipt Date: 20120322
  Transmission Date: 20120825
  Serious: Yes (Life-Threatening)
  Sender: FDA-Public Use
  Company Number: AU-ROCHE-1054463

PATIENT
  Sex: Male

DRUGS (5)
  1. AVASTIN [Suspect]
     Indication: COLORECTAL CANCER
     Route: 042
     Dates: start: 20120228
  2. GRANISETRON [Suspect]
     Indication: COLORECTAL CANCER
     Route: 042
     Dates: start: 20120228
  3. XELODA [Suspect]
     Indication: COLORECTAL CANCER
     Route: 048
     Dates: start: 20120228
  4. OXALIPLATIN [Concomitant]
     Indication: COLORECTAL CANCER
     Route: 042
     Dates: start: 20120228
  5. DEXAMETHASONE [Concomitant]
     Indication: COLORECTAL CANCER
     Route: 042
     Dates: start: 20120228

REACTIONS (1)
  - EMBOLISM [None]
